FAERS Safety Report 4549592-2 (Version None)
Quarter: 2005Q1

REPORT INFORMATION
  Report Type: 
  Country: None (occurrence: None)
  Receive Date: 20050111
  Receipt Date: 20050104
  Transmission Date: 20050727
  Serious: Yes (Other)
  Sender: FDA-Public Use
  Company Number: US-JNJFOC-20050100886

PATIENT
  Age: 76 Year
  Sex: Female

DRUGS (1)
  1. DOXIL [Suspect]
     Indication: OVARIAN CANCER
     Dosage: 40MG/M2 X4 CYCLES
     Route: 042

REACTIONS (3)
  - COUGH [None]
  - PNEUMONITIS [None]
  - PYREXIA [None]
